FAERS Safety Report 22093807 (Version 1)
Quarter: 2023Q1

REPORT INFORMATION
  Report Type: Spontaneous
  Country: FR (occurrence: FR)
  Receive Date: 20230314
  Receipt Date: 20230314
  Transmission Date: 20230418
  Serious: Yes (Life-Threatening, Hospitalization)
  Sender: FDA-Public Use
  Company Number: FR-AstraZeneca-2023A046229

PATIENT
  Age: 70 Year
  Sex: Male
  Weight: 68 kg

DRUGS (20)
  1. PACLITAXEL [Suspect]
     Active Substance: PACLITAXEL
     Indication: Non-small cell lung cancer
     Dosage: 357MG
     Dates: start: 20230118, end: 20230118
  2. PACLITAXEL [Suspect]
     Active Substance: PACLITAXEL
     Dosage: 357MG
     Dates: start: 20230208, end: 20230208
  3. PACLITAXEL [Suspect]
     Active Substance: PACLITAXEL
     Dosage: 357MG
     Dates: start: 20221228, end: 20221228
  4. CARBOPLATIN [Suspect]
     Active Substance: CARBOPLATIN
     Indication: Non-small cell lung cancer
     Dosage: 755MG
     Dates: start: 20221228, end: 20221228
  5. CARBOPLATIN [Suspect]
     Active Substance: CARBOPLATIN
     Dosage: 840MG
     Dates: start: 20230118, end: 20230118
  6. CARBOPLATIN [Suspect]
     Active Substance: CARBOPLATIN
     Dosage: 965MG
     Dates: start: 20230208, end: 20230208
  7. OLECLUMAB [Suspect]
     Active Substance: OLECLUMAB
     Indication: Non-small cell lung cancer
     Dosage: 3000MG?ROA-20045000
     Route: 042
     Dates: start: 20230118, end: 20230118
  8. OLECLUMAB [Suspect]
     Active Substance: OLECLUMAB
     Dosage: 3000MG?ROA-20045000
     Route: 042
     Dates: start: 20230208, end: 20230208
  9. OLECLUMAB [Suspect]
     Active Substance: OLECLUMAB
     Dosage: 3000MG?ROA-20045000
     Route: 042
     Dates: start: 20221228, end: 20221228
  10. DURVALUMAB [Suspect]
     Active Substance: DURVALUMAB
     Indication: Non-small cell lung cancer
     Dosage: 1500MG?ROA-20045000
     Route: 042
     Dates: start: 20230208, end: 20230208
  11. DURVALUMAB [Suspect]
     Active Substance: DURVALUMAB
     Dosage: 1500MG?ROA-20045000
     Route: 042
     Dates: start: 20221228, end: 20221228
  12. DURVALUMAB [Suspect]
     Active Substance: DURVALUMAB
     Dosage: 1500MG?ROA-20045000
     Route: 042
     Dates: start: 20230118, end: 20230118
  13. AMLODIPINE [Concomitant]
     Active Substance: AMLODIPINE BESYLATE
     Indication: Hypertension
     Dosage: ROA-20053000
     Route: 048
     Dates: start: 20130905
  14. SIMVASTATIN [Concomitant]
     Active Substance: SIMVASTATIN
     Indication: Hypercholesterolaemia
     Dosage: ROA-20053000
     Route: 048
     Dates: start: 20140916
  15. AMITRIPTYLINE HYDROCHLORIDE [Concomitant]
     Active Substance: AMITRIPTYLINE HYDROCHLORIDE
     Indication: Injury
     Dosage: ROA-20053000
     Route: 048
     Dates: start: 201308
  16. IMODIUM [Concomitant]
     Active Substance: LOPERAMIDE HYDROCHLORIDE
     Indication: Diarrhoea
     Dosage: ROA-20053000
     Route: 048
     Dates: start: 20230101
  17. LOSARTAN [Concomitant]
     Active Substance: LOSARTAN
     Indication: Hypertension
     Dosage: 100MG?ROA-20053000
     Route: 048
     Dates: start: 20130905
  18. SERASTA [Concomitant]
     Indication: Injury
     Dosage: ROA-20053000
     Route: 048
     Dates: start: 20130905
  19. HYDROCHLOROTHIAZIDE [Concomitant]
     Active Substance: HYDROCHLOROTHIAZIDE
     Indication: Hypertension
     Dosage: ROA-20053000
     Route: 048
     Dates: start: 20130905
  20. OMEPRAZOLE [Concomitant]
     Active Substance: OMEPRAZOLE
     Indication: Gastrooesophageal reflux disease
     Dosage: ROA-20053000
     Route: 048
     Dates: start: 2022

REACTIONS (2)
  - Pneumonitis [Not Recovered/Not Resolved]
  - Stress cardiomyopathy [Not Recovered/Not Resolved]

NARRATIVE: CASE EVENT DATE: 20230216
